FAERS Safety Report 7464235-6 (Version None)
Quarter: 2011Q2

REPORT INFORMATION
  Report Type: 
  Country: None (occurrence: None)
  Receive Date: 20110506
  Receipt Date: 20110503
  Transmission Date: 20111010
  Serious: Yes (Life-Threatening)
  Sender: FDA-Public Use
  Company Number: TW-ASTRAZENECA-2011SE25652

PATIENT
  Age: 9 Year
  Sex: Male
  Weight: 38 kg

DRUGS (5)
  1. LIDOCAINE [Suspect]
     Route: 039
  2. ATROPINE [Concomitant]
  3. MIDAZOLAM [Concomitant]
     Dosage: 8 MG
     Route: 042
  4. KETAMINE [Concomitant]
     Dosage: 20 MG
  5. XYLOCAINE [Suspect]
     Dosage: 4 PUFF

REACTIONS (2)
  - PULMONARY OEDEMA [None]
  - ANAPHYLACTIC REACTION [None]
